FAERS Safety Report 6713528-6 (Version None)
Quarter: 2010Q2

REPORT INFORMATION
  Report Type: 
  Country: None (occurrence: None)
  Receive Date: 20100506
  Receipt Date: 20100426
  Transmission Date: 20101027
  Serious: Yes (Other)
  Sender: FDA-Public Use
  Company Number: US-SANOFI-AVENTIS-2010SA024568

PATIENT
  Sex: Female

DRUGS (6)
  1. LANTUS [Suspect]
     Indication: TYPE 2 DIABETES MELLITUS
     Dosage: DOSE:56 UNIT(S)
     Route: 058
     Dates: start: 20070101
  2. OPTICLICK [Suspect]
     Indication: TYPE 2 DIABETES MELLITUS
     Dates: start: 20070101
  3. SYNTHROID [Concomitant]
  4. ANTIHYPERTENSIVES [Concomitant]
  5. METFORMIN [Concomitant]
  6. HUMALOG [Concomitant]
     Dosage: WITH MEALS

REACTIONS (1)
  - ARTHRITIS [None]
